FAERS Safety Report 8836906 (Version 1)
Quarter: 2012Q4

REPORT INFORMATION
  Report Type: 
  Country: US (occurrence: US)
  Receive Date: 20121012
  Receipt Date: 20121012
  Transmission Date: 20130627
  Serious: No
  Sender: FDA-Public Use
  Company Number: US-009507513-1210USA004243

PATIENT

DRUGS (2)
  1. INTEGRILIN [Suspect]
     Dosage: 360 Microgram per kilogram, UNK
     Route: 042
     Dates: start: 20121007
  2. INTEGRILIN [Suspect]
     Dosage: 180 Microgram per kilogram, UNK
     Route: 042
     Dates: start: 20121008

REACTIONS (3)
  - Overdose [Unknown]
  - Medication error [Unknown]
  - No adverse event [Unknown]
